FAERS Safety Report 8532220-9 (Version None)
Quarter: 2012Q3

REPORT INFORMATION
  Report Type: 
  Country: None (occurrence: None)
  Receive Date: 20120723
  Receipt Date: 20120717
  Transmission Date: 20120928
  Serious: Yes (Hospitalization)
  Sender: FDA-Public Use
  Company Number: JP-BAXTER-2012BAX007829

PATIENT
  Sex: Male
  Weight: 54 kg

DRUGS (5)
  1. ADVATE [Suspect]
     Indication: HAEMOSTASIS
     Route: 042
     Dates: start: 20100526, end: 20120603
  2. ADVATE [Suspect]
     Route: 042
     Dates: start: 20120604, end: 20120604
  3. ADVATE [Suspect]
     Indication: HAEMOSTASIS
     Route: 042
     Dates: start: 20100526, end: 20120603
  4. ADVATE [Suspect]
     Dosage: UNKNOWN
     Route: 042
     Dates: start: 20070518, end: 20100525
  5. ADVATE [Suspect]
     Dosage: UNKNOWN
     Route: 042
     Dates: start: 20070518, end: 20100525

REACTIONS (3)
  - DECREASED APPETITE [None]
  - ABDOMINAL PAIN [None]
  - HEADACHE [None]
